FAERS Safety Report 15272453 (Version 1)
Quarter: 2018Q3

REPORT INFORMATION
  Report Type: Spontaneous
  Country: US (occurrence: US)
  Receive Date: 20180813
  Receipt Date: 20180813
  Transmission Date: 20181010
  Serious: No
  Sender: FDA-Public Use
  Company Number: US-SA-2018SA220481

PATIENT
  Sex: Female

DRUGS (2)
  1. CERDELGA [Suspect]
     Active Substance: ELIGLUSTAT
     Route: 048
  2. CEREZYME [Concomitant]
     Active Substance: IMIGLUCERASE
     Indication: GAUCHER^S DISEASE
     Route: 041

REACTIONS (4)
  - Cough [Recovering/Resolving]
  - Decreased activity [Recovering/Resolving]
  - Urinary incontinence [Recovering/Resolving]
  - Vomiting [Recovering/Resolving]
